FAERS Safety Report 20740500 (Version 1)
Quarter: 2022Q2

REPORT INFORMATION
  Report Type: Report from Study
  Country: US (occurrence: US)
  Receive Date: 20220422
  Receipt Date: 20220422
  Transmission Date: 20220720
  Serious: Yes (Other)
  Sender: FDA-Public Use
  Company Number: US-JNJFOC-20220426326

PATIENT

DRUGS (1)
  1. STELARA [Suspect]
     Active Substance: USTEKINUMAB
     Indication: Crohn^s disease
     Route: 058

REACTIONS (6)
  - Abdominal abscess [Unknown]
  - Eosinophilia [Unknown]
  - Adverse drug reaction [Unknown]
  - Infection [Unknown]
  - Injection site reaction [Unknown]
  - Drug ineffective [Unknown]
